FAERS Safety Report 10748016 (Version 2)
Quarter: 2015Q2

REPORT INFORMATION
  Report Type: Report from Study
  Country: US (occurrence: None)
  Receive Date: 20150120
  Receipt Date: 20150420
  Transmission Date: 20150821
  Serious: No
  Sender: FDA-Public Use
  Company Number: AEGR001035

PATIENT
  Age: 51 Year
  Sex: Female
  Weight: 118.4 kg

DRUGS (13)
  1. SPIRONOLACTONE (SPIRONOLACTONE) [Concomitant]
     Active Substance: SPIRONOLACTONE
  2. TRAJENTA (LINAGLIPTIN) [Concomitant]
     Active Substance: LINAGLIPTIN
  3. CRESTOR [Concomitant]
     Active Substance: ROSUVASTATIN CALCIUM
  4. METFORMIN [Concomitant]
     Active Substance: METFORMIN HYDROCHLORIDE
  5. LISINOPRIL (LISINOPRIL) [Concomitant]
     Active Substance: LISINOPRIL
  6. METOPROLOL (METOPROLOL) [Concomitant]
     Active Substance: METOPROLOL
  7. ISOSORBIDE MONONITRETE (ISOSORBIDE MONONITRATE) [Concomitant]
  8. ASPIRIN (ASPIRIN) [Concomitant]
     Active Substance: ASPIRIN
  9. JUXTAPID [Suspect]
     Active Substance: LOMITAPIDE MESYLATE
     Indication: TYPE IIA HYPERLIPIDAEMIA
     Route: 048
     Dates: start: 20141201
  10. ANTACIDS [Concomitant]
     Active Substance: UNSPECIFIED INGREDIENT
  11. ZETIA [Concomitant]
     Active Substance: EZETIMIBE
  12. NORVASC [Concomitant]
     Active Substance: AMLODIPINE BESYLATE
  13. GLIPIZIDE (GLIPIZIDE) [Concomitant]
     Active Substance: GLIPIZIDE

REACTIONS (10)
  - Flatulence [None]
  - Migraine [None]
  - Weight increased [None]
  - Fatigue [None]
  - Nausea [None]
  - Diarrhoea [None]
  - Dehydration [None]
  - Abdominal distension [None]
  - Weight decreased [None]
  - Swelling [None]

NARRATIVE: CASE EVENT DATE: 2014
